FAERS Safety Report 16919891 (Version 1)
Quarter: 2019Q4

REPORT INFORMATION
  Report Type: Spontaneous
  Country: US (occurrence: US)
  Receive Date: 20191015
  Receipt Date: 20191015
  Transmission Date: 20200122
  Serious: Yes (Hospitalization)
  Sender: FDA-Public Use
  Company Number: US-BEH-2019107717

PATIENT
  Age: 42 Year
  Sex: Female
  Weight: 70.3 kg

DRUGS (5)
  1. HIZENTRA [Suspect]
     Active Substance: HUMAN IMMUNOGLOBULIN G
     Indication: MYASTHENIC SYNDROME
     Dosage: 14 GRAM, QW
     Route: 058
     Dates: end: 201908
  2. HUMAN IMMUNOGLOBULIN (INN) [Suspect]
     Active Substance: HUMAN IMMUNOGLOBULIN G
     Dosage: UNK
     Route: 042
     Dates: end: 201806
  3. FIRDAPSE [Concomitant]
     Active Substance: AMIFAMPRIDINE
     Dosage: 15 UNK
     Dates: start: 20190223
  4. HUMAN IMMUNOGLOBULIN (INN) [Suspect]
     Active Substance: HUMAN IMMUNOGLOBULIN G
     Indication: MYASTHENIC SYNDROME
     Dosage: 25 MILLIGRAM, QW
     Route: 042
     Dates: start: 2015, end: 201706
  5. FIRDAPSE [Concomitant]
     Active Substance: AMIFAMPRIDINE
     Indication: MYASTHENIC SYNDROME
     Dosage: 15 MILLIGRAM, QID
     Route: 048
     Dates: start: 201706

REACTIONS (6)
  - Photophobia [Recovering/Resolving]
  - Pain [Recovering/Resolving]
  - Migraine [Recovered/Resolved]
  - Headache [Recovered/Resolved]
  - Meningitis aseptic [Recovering/Resolving]
  - Product use in unapproved indication [Recovering/Resolving]

NARRATIVE: CASE EVENT DATE: 2019
